FAERS Safety Report 12460248 (Version 3)
Quarter: 2016Q3

REPORT INFORMATION
  Report Type: Spontaneous
  Country: US (occurrence: US)
  Receive Date: 20160613
  Receipt Date: 20160823
  Transmission Date: 20161109
  Serious: No
  Sender: FDA-Public Use
  Company Number: US-009507513-1606USA002517

PATIENT
  Age: 24 Year
  Sex: Female
  Weight: 171.43 kg

DRUGS (1)
  1. NEXPLANON [Suspect]
     Active Substance: ETONOGESTREL
     Indication: CONTRACEPTION
     Dosage: 1 ROD, EVERY 3 YEARS
     Route: 058
     Dates: end: 20160629

REACTIONS (4)
  - Limb discomfort [Recovered/Resolved]
  - Device deployment issue [Recovered/Resolved]
  - Paraesthesia [Unknown]
  - Device breakage [Recovered/Resolved]

NARRATIVE: CASE EVENT DATE: 20160608
